FAERS Safety Report 8479396-X (Version None)
Quarter: 2012Q2

REPORT INFORMATION
  Report Type: 
  Country: None (occurrence: None)
  Receive Date: 20120629
  Receipt Date: 20120619
  Transmission Date: 20120825
  Serious: Yes (Other)
  Sender: FDA-Public Use
  Company Number: JP-BRISTOL-MYERS SQUIBB COMPANY-16702722

PATIENT
  Age: 78 Year
  Sex: Male

DRUGS (1)
  1. CISPLATIN [Suspect]
     Indication: RENAL NEOPLASM
     Route: 042

REACTIONS (1)
  - MYELODYSPLASTIC SYNDROME [None]
